FAERS Safety Report 25532850 (Version 2)
Quarter: 2025Q3

REPORT INFORMATION
  Report Type: Spontaneous
  Country: US (occurrence: US)
  Receive Date: 20250709
  Receipt Date: 20250807
  Transmission Date: 20251021
  Serious: No
  Sender: APOTEX
  Company Number: US-APOTEX-2025AP008685

PATIENT
  Sex: Male

DRUGS (4)
  1. FLUVOXAMINE MALEATE [Suspect]
     Active Substance: FLUVOXAMINE MALEATE
     Indication: Anxiety
     Dosage: 125 MILLIGRAM, QD (1 TABLET OF 100 MG AND 1 TABLET OF 25 MG)
     Route: 065
  2. FLUVOXAMINE MALEATE [Suspect]
     Active Substance: FLUVOXAMINE MALEATE
     Indication: Anxiety
     Dosage: 125 MILLIGRAM, Q.H.S. (2 TABLETS OF 50 MG AND 1 TABLET OF 25 MG))
     Route: 065
  3. FLUVOXAMINE MALEATE [Suspect]
     Active Substance: FLUVOXAMINE MALEATE
     Indication: Anxiety
     Dosage: 125 MILLIGRAM, Q.H.S. (2 TABLETS OF 50 MG AND 1 TABLET OF 25 MG))
     Route: 065
  4. CLONAZEPAM [Concomitant]
     Active Substance: CLONAZEPAM
     Indication: Sleep disorder
     Dosage: 1.25 MILLIGRAM, Q.H.S.
     Route: 048

REACTIONS (5)
  - Eye pain [Recovered/Resolved]
  - Neck pain [Recovered/Resolved]
  - Allergic reaction to excipient [Recovered/Resolved]
  - Manufacturing materials issue [Unknown]
  - Headache [Recovered/Resolved]

NARRATIVE: CASE EVENT DATE: 20250101
